FAERS Safety Report 24907859 (Version 1)
Quarter: 2025Q1

REPORT INFORMATION
  Report Type: Spontaneous
  Country: JP (occurrence: JP)
  Receive Date: 20250131
  Receipt Date: 20250131
  Transmission Date: 20250408
  Serious: Yes (Death, Other)
  Sender: MERCK
  Company Number: JP-MSD-2501JPN003025J

PATIENT
  Age: 9 Decade
  Sex: Female

DRUGS (2)
  1. KEYTRUDA [Suspect]
     Active Substance: PEMBROLIZUMAB
     Indication: Uterine cancer
     Route: 065
  2. LENVATINIB MESYLATE [Suspect]
     Active Substance: LENVATINIB MESYLATE
     Indication: Uterine cancer
     Route: 065

REACTIONS (6)
  - Malignant neoplasm progression [Fatal]
  - Depressed level of consciousness [Recovering/Resolving]
  - Disseminated intravascular coagulation [Unknown]
  - Disorientation [Unknown]
  - Lymphoedema [Unknown]
  - Infection [Unknown]
